FAERS Safety Report 9458919 (Version 6)
Quarter: 2014Q2

REPORT INFORMATION
  Report Type: Report from Study
  Country: AU (occurrence: AU)
  Receive Date: 20130814
  Receipt Date: 20140512
  Transmission Date: 20141212
  Serious: Yes (Hospitalization, Other)
  Sender: FDA-Public Use
  Company Number: PHHY2013AU086255

PATIENT
  Age: 75 Year
  Sex: Female

DRUGS (5)
  1. AFINITOR [Suspect]
     Indication: BREAST CANCER METASTATIC
     Dosage: 10 MG, QD
     Route: 048
     Dates: start: 20130714, end: 20130806
  2. EXEMESTANE [Suspect]
     Indication: BREAST CANCER METASTATIC
     Dates: start: 20130714, end: 20130807
  3. ZOCOR [Concomitant]
     Indication: BLOOD CHOLESTEROL INCREASED
     Dosage: 1 DF, PER DAY
  4. RAMIPRIL [Concomitant]
     Indication: HYPERTENSION
     Dosage: 1.25 MG, PER DAY
  5. TRITACE [Concomitant]
     Route: 048

REACTIONS (13)
  - Pneumonitis [Recovering/Resolving]
  - Pyrexia [Not Recovered/Not Resolved]
  - Fatigue [Not Recovered/Not Resolved]
  - Dyspnoea [Unknown]
  - Cough [Unknown]
  - Hypoxia [Not Recovered/Not Resolved]
  - Performance status decreased [Unknown]
  - Tachypnoea [Not Recovered/Not Resolved]
  - Atelectasis [Unknown]
  - Lung consolidation [Not Recovered/Not Resolved]
  - Pleural effusion [Unknown]
  - Lung infiltration [Not Recovered/Not Resolved]
  - Hyperhidrosis [Unknown]
